FAERS Safety Report 8799035 (Version 1)
Quarter: 2012Q4

REPORT INFORMATION
  Report Type: 
  Country: DE (occurrence: DE)
  Receive Date: 20120920
  Receipt Date: 20120920
  Transmission Date: 20130627
  Serious: Yes (Congenital Anomaly)
  Sender: FDA-Public Use
  Company Number: GXKR2012DE002978

PATIENT

DRUGS (3)
  1. LEVETIRACETAM [Suspect]
     Dosage: Maternal dose: 2000 [mg/d (1000-0-1000) ]
     Route: 064
  2. FOLIC ACID [Concomitant]
     Dosage: Maternal dose: 0.8 [mg/d ]/ also preconceptional
     Route: 064
     Dates: start: 20110518, end: 20120204
  3. ERYTHROMYCIN [Concomitant]
     Route: 064

REACTIONS (4)
  - Hemivertebra [Not Recovered/Not Resolved]
  - Plagiocephaly [Not Recovered/Not Resolved]
  - Scoliosis [Not Recovered/Not Resolved]
  - Foetal exposure during pregnancy [Unknown]
